FAERS Safety Report 4520005-X (Version None)
Quarter: 2004Q4

REPORT INFORMATION
  Report Type: 
  Country: None (occurrence: None)
  Receive Date: 20041201
  Receipt Date: 20041201
  Transmission Date: 20050328
  Serious: Yes (Life-Threatening, Hospitalization)
  Sender: FDA-Public Use
  Company Number: None

PATIENT
  Age: 58 Year
  Sex: Male

DRUGS (3)
  1. TRAZODONE HCL [Suspect]
  2. PAROXETINE [Concomitant]
  3. LITHIUM [Concomitant]

REACTIONS (4)
  - DIARRHOEA [None]
  - NAUSEA [None]
  - PALPITATIONS [None]
  - VOMITING [None]
